FAERS Safety Report 8222896-8 (Version None)
Quarter: 2012Q1

REPORT INFORMATION
  Report Type: 
  Country: None (occurrence: None)
  Receive Date: 20120320
  Receipt Date: 20120305
  Transmission Date: 20120608
  Serious: Yes (Other)
  Sender: FDA-Public Use
  Company Number: CHPA2012US004523

PATIENT
  Age: 52 Year
  Sex: Male

DRUGS (2)
  1. EXCEDRIN EXTRA STRENGTH TABLETS [Suspect]
     Indication: HEADACHE
     Dosage: 4 DF AT ONE TIME IN A DAY
     Route: 048
     Dates: start: 19820101
  2. LORCET-HD [Concomitant]
     Dosage: UNK, UNK

REACTIONS (21)
  - HAND FRACTURE [None]
  - EXOSTOSIS [None]
  - FEELING ABNORMAL [None]
  - INCORRECT DOSE ADMINISTERED [None]
  - ANKLE FRACTURE [None]
  - BLOOD TESTOSTERONE DECREASED [None]
  - DEPRESSION [None]
  - DYSPEPSIA [None]
  - DRUG ABUSE [None]
  - ANXIETY [None]
  - UPPER LIMB FRACTURE [None]
  - PSYCHOMOTOR HYPERACTIVITY [None]
  - VOMITING [None]
  - JOINT DISLOCATION [None]
  - HYPERHIDROSIS [None]
  - JOINT INJURY [None]
  - ABASIA [None]
  - WRIST FRACTURE [None]
  - ARTHRITIS [None]
  - ERECTILE DYSFUNCTION [None]
  - GASTRIC DISORDER [None]
